FAERS Safety Report 16610274 (Version 1)
Quarter: 2019Q3

REPORT INFORMATION
  Report Type: Spontaneous
  Country: LB (occurrence: LB)
  Receive Date: 20190722
  Receipt Date: 20190722
  Transmission Date: 20191004
  Serious: Yes (Life-Threatening, Other)
  Sender: FDA-Public Use
  Company Number: LB-ASTRAZENECA-2019SF04533

PATIENT
  Age: 63 Year
  Sex: Male

DRUGS (1)
  1. BRILINTA [Suspect]
     Active Substance: TICAGRELOR
     Indication: ACUTE CORONARY SYNDROME
     Dosage: 90.0MG UNKNOWN
     Route: 048

REACTIONS (3)
  - Cardiac arrest [Unknown]
  - Brain injury [Unknown]
  - Vascular stent thrombosis [Unknown]
